FAERS Safety Report 7377986-9 (Version None)
Quarter: 2011Q1

REPORT INFORMATION
  Report Type: 
  Country: None (occurrence: None)
  Receive Date: 20110328
  Receipt Date: 20110314
  Transmission Date: 20110831
  Serious: Yes (Hospitalization)
  Sender: FDA-Public Use
  Company Number: JP-JNJFOC-20101000241

PATIENT
  Sex: Female
  Weight: 153 kg

DRUGS (22)
  1. REMICADE [Suspect]
     Dosage: 9TH INFUSION
     Route: 042
  2. REMICADE [Suspect]
     Dosage: FIRST INFUSION
     Route: 042
  3. METHOTREXATE [Suspect]
     Indication: RHEUMATOID ARTHRITIS
     Route: 048
  4. REMICADE [Suspect]
     Dosage: 9TH INFUSION
     Route: 042
  5. REMICADE [Suspect]
     Dosage: 7TH INFUSION
     Route: 042
  6. SALAZOSULFAPYRIDINE [Suspect]
     Indication: ILL-DEFINED DISORDER
     Route: 048
  7. REMICADE [Suspect]
     Dosage: FIRST INFUSION
     Route: 042
  8. REMICADE [Suspect]
     Dosage: 4TH INFUSION
     Route: 042
  9. REMICADE [Suspect]
     Dosage: 2ND INFUSION
     Route: 042
  10. REMICADE [Suspect]
     Indication: RHEUMATOID ARTHRITIS
     Dosage: 5TH INFUSION
     Route: 042
  11. REMICADE [Suspect]
     Dosage: 6TH INFUSION
     Route: 042
  12. RAMITALATE [Concomitant]
     Indication: HYPERTENSION
     Route: 048
  13. REMICADE [Suspect]
     Dosage: 8TH INFUSION
     Route: 042
  14. REMICADE [Suspect]
     Dosage: 7TH INFUSION
     Route: 042
  15. REMICADE [Suspect]
     Dosage: 6TH INFUSION
     Route: 042
  16. REMICADE [Suspect]
     Dosage: 3RD INFUSION
     Route: 042
  17. REMICADE [Suspect]
     Dosage: 4TH INFUSION
     Route: 042
  18. REMICADE [Suspect]
     Dosage: 8TH INFUSION
     Route: 042
  19. REMICADE [Suspect]
     Indication: PSORIASIS
     Dosage: 3RD INFUSION
     Route: 042
  20. REMICADE [Suspect]
     Dosage: 5TH INFUSION
     Route: 042
  21. REMICADE [Suspect]
     Dosage: 2ND INFUSION
     Route: 042
  22. FOLIAMIN [Concomitant]
     Indication: PROPHYLAXIS
     Route: 048

REACTIONS (1)
  - PNEUMONIA LEGIONELLA [None]
